FAERS Safety Report 23635628 (Version 1)
Quarter: 2024Q1

REPORT INFORMATION
  Report Type: Spontaneous
  Country: US (occurrence: US)
  Receive Date: 20240315
  Receipt Date: 20240315
  Transmission Date: 20240410
  Serious: Yes (Other)
  Sender: FDA-Public Use
  Company Number: US-SANDOZ-SDZ2024US026888

PATIENT
  Sex: Male

DRUGS (1)
  1. ALBUTEROL SULFATE [Suspect]
     Active Substance: ALBUTEROL SULFATE
     Indication: Chronic obstructive pulmonary disease
     Dosage: 90MCG/DOS 200DO
     Route: 065

REACTIONS (7)
  - Bipolar disorder [Unknown]
  - Dyspnoea [Unknown]
  - Anxiety [Unknown]
  - Panic attack [Unknown]
  - Product dose omission issue [Unknown]
  - Device delivery system issue [Unknown]
  - Off label use [Unknown]
